FAERS Safety Report 5272945-4 (Version None)
Quarter: 2007Q1

REPORT INFORMATION
  Report Type: 
  Country: None (occurrence: None)
  Receive Date: 20070322
  Receipt Date: 20070315
  Transmission Date: 20070707
  Serious: Yes (Hospitalization)
  Sender: FDA-Public Use
  Company Number: 2007AP01683

PATIENT
  Age: 54 Year
  Sex: Male

DRUGS (1)
  1. FOSCAVIR [Suspect]
     Indication: CYTOMEGALOVIRUS CHORIORETINITIS
     Route: 041
     Dates: start: 20050916, end: 20050928

REACTIONS (1)
  - INTERSTITIAL LUNG DISEASE [None]
